FAERS Safety Report 11871595 (Version 3)
Quarter: 2016Q1

REPORT INFORMATION
  Report Type: Spontaneous
  Country: US (occurrence: US)
  Receive Date: 20151228
  Receipt Date: 20160302
  Transmission Date: 20160526
  Serious: Yes (Death, Other)
  Sender: FDA-Public Use
  Company Number: US-PFIZER INC-2015459785

PATIENT
  Sex: Female

DRUGS (1)
  1. GABAPENTIN. [Suspect]
     Active Substance: GABAPENTIN
     Dosage: UNK

REACTIONS (5)
  - Death [Fatal]
  - Psychotic disorder [Unknown]
  - Depression [Unknown]
  - Suicidal ideation [Unknown]
  - Hallucinations, mixed [Unknown]
